FAERS Safety Report 8761393 (Version 1)
Quarter: 2012Q4

REPORT INFORMATION
  Report Type: 
  Country: DE (occurrence: DE)
  Receive Date: 20120830
  Receipt Date: 20120830
  Transmission Date: 20130627
  Serious: Yes (Hospitalization)
  Sender: FDA-Public Use
  Company Number: DE-PFIZER INC-2012208486

PATIENT
  Sex: Female
  Weight: 65 kg

DRUGS (8)
  1. GENOTROPIN [Suspect]
     Indication: HYPOPITUITARISM
     Dosage: 0.3 mg, 7-WK
     Route: 058
     Dates: start: 20050510
  2. FUROSEMID [Concomitant]
     Indication: BLOOD ANTIDIURETIC HORMONE DECREASED
     Dosage: UNK
     Dates: start: 20030724
  3. DEKRISTOL [Concomitant]
     Indication: VITAMIN D DEFICIENCY
     Dosage: UNK
     Dates: start: 20071209
  4. ASS 100 [Concomitant]
     Indication: HYPERTENSION
     Dosage: UNK
     Dates: start: 20080612
  5. HYDROCORTISON [Concomitant]
     Indication: LEFT VENTRICULAR FAILURE
     Dosage: UNK
     Dates: start: 19991001
  6. GYNOKADIN GEL [Concomitant]
     Indication: MENOPAUSE
     Dosage: UNK
     Dates: start: 20080614
  7. L-THYROXIN [Concomitant]
     Indication: BLOOD THYROID STIMULATING HORMONE DECREASED
     Dosage: UNK
     Dates: start: 20090113
  8. L-THYROXIN [Concomitant]
     Indication: PRIMARY HYPOTHYROIDISM

REACTIONS (1)
  - Pituitary tumour benign [Unknown]
